FAERS Safety Report 8305024-X (Version None)
Quarter: 2012Q2

REPORT INFORMATION
  Report Type: 
  Country: None (occurrence: None)
  Receive Date: 20120423
  Receipt Date: 20120413
  Transmission Date: 20120825
  Serious: Yes (Disabling, Other)
  Sender: FDA-Public Use
  Company Number: GB-ASTRAZENECA-2012SE24416

PATIENT
  Age: 78 Year
  Sex: Female
  Weight: 41.6 kg

DRUGS (8)
  1. CYCLIZINE [Concomitant]
     Route: 048
     Dates: start: 20120110
  2. MIRTAZAPINE [Concomitant]
     Dates: start: 20120110
  3. CALCICHEW D3 [Concomitant]
     Route: 048
     Dates: start: 20120110
  4. OMEPRAZOLE [Concomitant]
     Route: 048
     Dates: start: 20120110
  5. TEMAZEPAM [Concomitant]
     Route: 048
     Dates: start: 20120110
  6. FYBOGEL [Concomitant]
  7. FULVESTRANT [Suspect]
     Indication: BREAST CANCER METASTATIC
     Route: 030
     Dates: start: 20120124, end: 20120209
  8. ALBUTEROL [Concomitant]
     Route: 055

REACTIONS (2)
  - PERONEAL NERVE PALSY [None]
  - HYPERSENSITIVITY [None]
